FAERS Safety Report 4411326-X (Version None)
Quarter: 2004Q3

REPORT INFORMATION
  Report Type: 
  Country: None (occurrence: None)
  Receive Date: 20040727
  Receipt Date: 20040713
  Transmission Date: 20050211
  Serious: Yes (Hospitalization)
  Sender: FDA-Public Use
  Company Number: USA-2004-0016003

PATIENT
  Age: 72 Year
  Sex: Male

DRUGS (3)
  1. CEFDITOREN PIVOXIL (SIMILAR TO NDA 21-222))CEFDITOREN PIVOXIL) OTHER [Suspect]
     Indication: PNEUMONIA
     Dosage: 300 MG, DAILY, ORAL
     Route: 048
     Dates: start: 20040624, end: 20040627
  2. KETEC(TELITHROMYCIN) [Suspect]
     Indication: PNEUMONIA
     Dosage: 600 MG, DAILY, ORAL
     Route: 048
     Dates: start: 20040628, end: 20040704
  3. CLARITHROMYCIN [Suspect]
     Indication: PNEUMONIA
     Dosage: 400 MG, DAILY, ORAL
     Route: 048
     Dates: start: 20040705, end: 20040711

REACTIONS (1)
  - PNEUMONIA [None]
